FAERS Safety Report 8938261 (Version 2)
Quarter: 2013Q1

REPORT INFORMATION
  Report Type: Spontaneous
  Country: TW (occurrence: TW)
  Receive Date: 20121203
  Receipt Date: 20130204
  Transmission Date: 20140127
  Serious: Yes (Other)
  Sender: FDA-Public Use
  Company Number: PHHY2012TW110065

PATIENT
  Sex: 0

DRUGS (1)
  1. MIACALCIC [Suspect]
     Dosage: 50 IU
     Route: 030
     Dates: start: 20121130

REACTIONS (2)
  - Shock [Recovered/Resolved]
  - Heart rate decreased [Recovered/Resolved]
